FAERS Safety Report 6783289-3 (Version None)
Quarter: 2010Q2

REPORT INFORMATION
  Report Type: 
  Country: None (occurrence: None)
  Receive Date: 20100617
  Receipt Date: 20100602
  Transmission Date: 20101027
  Serious: Yes (Life-Threatening, Hospitalization)
  Sender: FDA-Public Use
  Company Number: 10-207

PATIENT
  Age: 12 Year
  Sex: Male

DRUGS (1)
  1. IBUPROFEN [Suspect]
     Dosage: 150-MG, PRIOR TO 06/02/10
     Dates: end: 20100602

REACTIONS (12)
  - ANAPHYLACTIC REACTION [None]
  - ANGIOEDEMA [None]
  - BRADYCARDIA [None]
  - COUGH [None]
  - DYSPNOEA [None]
  - HYPOTENSION [None]
  - OXYGEN SATURATION DECREASED [None]
  - PYREXIA [None]
  - RASH GENERALISED [None]
  - RESPIRATORY RATE INCREASED [None]
  - TACHYPNOEA [None]
  - URTICARIA [None]
